FAERS Safety Report 12839432 (Version 2)
Quarter: 2016Q4

REPORT INFORMATION
  Report Type: Spontaneous
  Country: US (occurrence: US)
  Receive Date: 20161012
  Receipt Date: 20161103
  Transmission Date: 20170207
  Serious: No
  Sender: FDA-Public Use
  Company Number: US-PFIZER INC-2016473916

PATIENT
  Age: 61 Year
  Sex: Female

DRUGS (2)
  1. CRESTOR [Concomitant]
     Active Substance: ROSUVASTATIN CALCIUM
     Indication: BLOOD CHOLESTEROL ABNORMAL
     Dosage: 20 MG, 1X/DAY
     Route: 048
     Dates: start: 2011
  2. PRISTIQ EXTENDED-RELEASE [Suspect]
     Active Substance: DESVENLAFAXINE SUCCINATE
     Indication: DEPRESSION
     Dosage: 50 MG, 1X/DAY
     Route: 048
     Dates: start: 20160824, end: 201610

REACTIONS (4)
  - Blood pressure increased [Not Recovered/Not Resolved]
  - Dry mouth [Not Recovered/Not Resolved]
  - Stomatitis [Unknown]
  - Condition aggravated [Not Recovered/Not Resolved]

NARRATIVE: CASE EVENT DATE: 2016
